FAERS Safety Report 5750726-2 (Version None)
Quarter: 2008Q2

REPORT INFORMATION
  Report Type: 
  Country: None (occurrence: None)
  Receive Date: 20080523
  Receipt Date: 20080523
  Transmission Date: 20081010
  Serious: Yes (Hospitalization)
  Sender: FDA-Public Use
  Company Number: None

PATIENT
  Sex: Female
  Weight: 62.2 kg

DRUGS (3)
  1. CARBOPLATIN [Suspect]
     Dosage: 486 MG
     Dates: end: 20080225
  2. TAXOL [Suspect]
     Dosage: 294 MG
     Dates: end: 20080225
  3. NEXIUM [Concomitant]

REACTIONS (5)
  - CHILLS [None]
  - CLOSTRIDIUM DIFFICILE COLITIS [None]
  - DISEASE RECURRENCE [None]
  - NEUTROPENIA [None]
  - URINARY TRACT INFECTION [None]
